FAERS Safety Report 4570459-8 (Version None)
Quarter: 2005Q1

REPORT INFORMATION
  Report Type: 
  Country: None (occurrence: None)
  Receive Date: 20050204
  Receipt Date: 20050120
  Transmission Date: 20050727
  Serious: Yes (Life-Threatening, Hospitalization)
  Sender: FDA-Public Use
  Company Number: NL-JNJFOC-20050200054

PATIENT
  Sex: Female

DRUGS (2)
  1. BEPRIDIL [Suspect]
     Route: 049
  2. BEPRIDIL [Suspect]
     Indication: ATRIAL FLUTTER
     Route: 049

REACTIONS (6)
  - BLOOD LACTATE DEHYDROGENASE INCREASED [None]
  - GAMMA-GLUTAMYLTRANSFERASE INCREASED [None]
  - LOSS OF CONSCIOUSNESS [None]
  - OVARIAN CANCER [None]
  - TORSADE DE POINTES [None]
  - VENTRICULAR FIBRILLATION [None]
